FAERS Safety Report 24286012 (Version 2)
Quarter: 2024Q3

REPORT INFORMATION
  Report Type: Spontaneous
  Country: NL (occurrence: NL)
  Receive Date: 20240905
  Receipt Date: 20240910
  Transmission Date: 20241016
  Serious: Yes (Hospitalization, Other)
  Sender: PFIZER
  Company Number: NL-VANTIVE-2024VAN018566

PATIENT
  Sex: Male

DRUGS (23)
  1. HYDROCORTISONE SODIUM SUCCINATE [Suspect]
     Active Substance: HYDROCORTISONE SODIUM SUCCINATE
     Dosage: 200 MG, PER DAY
     Route: 042
  2. PANTOZOL [Suspect]
     Active Substance: PANTOPRAZOLE SODIUM
     Dosage: 40 MG, 1X/DAY40 MILLIGRAM, QD
     Route: 042
  3. HEPARIN [Suspect]
     Active Substance: HEPARIN SODIUM
     Dosage: 250 INTERNATIONAL UNIT, Q1HR
     Route: 042
  4. MIDAZOLAM [Suspect]
     Active Substance: MIDAZOLAM
     Dosage: 10 MILLIGRAM, Q12H
     Route: 042
  5. ARGIPRESSIN [Suspect]
     Active Substance: ARGIPRESSIN
     Dosage: 0.6 INTERNATIONAL UNIT, Q1HR
     Route: 042
  6. AMIODARONE [Suspect]
     Active Substance: AMIODARONE
     Dosage: 1.2 GRAM, QD
     Route: 042
  7. PROPOFOL [Suspect]
     Active Substance: PROPOFOL
     Dosage: 240 MILLIGRAM, Q1HR
     Route: 042
  8. CALCIUM CHLORIDE\MAGNESIUM CHLORIDE\POTASSIUM CHLORIDE\SODIUM BICARBON [Suspect]
     Active Substance: CALCIUM CHLORIDE\MAGNESIUM CHLORIDE\POTASSIUM CHLORIDE\SODIUM BICARBONATE\SODIUM CHLORIDE\SODIUM PHO
     Indication: Continuous haemodiafiltration
     Dosage: UNK (SOLUTION FOR HAEMODIALYSIS/HAEMOFILTRATION)
     Route: 065
     Dates: start: 20240717, end: 20240718
  9. SUFENTANIL [Suspect]
     Active Substance: SUFENTANIL
     Dosage: 10 MICROGRAM, Q1HR
     Route: 042
  10. ROCURONIUM [Suspect]
     Active Substance: ROCURONIUM BROMIDE
     Dosage: 100 MILLIGRAM
     Route: 042
  11. CARBIDOPA\LEVODOPA [Suspect]
     Active Substance: CARBIDOPA\LEVODOPA
     Dosage: 100/25, 3 TIMES A DAY ENTERAL BIJ NGT
     Route: 065
  12. PERFALGAN [Suspect]
     Active Substance: ACETAMINOPHEN
     Dosage: 4000 GRAM, QD
     Route: 042
  13. PIPERACILLIN SODIUM\TAZOBACTAM SODIUM [Suspect]
     Active Substance: PIPERACILLIN SODIUM\TAZOBACTAM SODIUM
     Dosage: 18 GRAM, QD
     Route: 042
  14. VANCOMYCIN [Suspect]
     Active Substance: VANCOMYCIN
     Dosage: 1 GRAM
     Route: 042
  15. DEXTROSE [Concomitant]
     Active Substance: DEXTROSE\DEXTROSE MONOHYDRATE
     Dosage: UNK
     Route: 065
     Dates: start: 20240717
  16. DEXTROSE [Concomitant]
     Active Substance: DEXTROSE\DEXTROSE MONOHYDRATE
     Dosage: UNK
     Route: 065
     Dates: start: 20240717
  17. DEXTROSE [Concomitant]
     Active Substance: DEXTROSE\DEXTROSE MONOHYDRATE
     Dosage: UNK
     Route: 065
     Dates: start: 20240717
  18. DEXTROSE [Concomitant]
     Active Substance: DEXTROSE\DEXTROSE MONOHYDRATE
     Dosage: UNK
     Route: 065
     Dates: end: 20240718
  19. INSULIN PORK\INSULIN PURIFIED PORK [Concomitant]
     Active Substance: INSULIN PORK\INSULIN PURIFIED PORK
     Dosage: UNK
     Route: 065
     Dates: start: 20240717
  20. INSULIN PORK\INSULIN PURIFIED PORK [Concomitant]
     Active Substance: INSULIN PORK\INSULIN PURIFIED PORK
     Dosage: UNK
     Route: 065
     Dates: start: 20240717
  21. INSULIN PORK\INSULIN PURIFIED PORK [Concomitant]
     Active Substance: INSULIN PORK\INSULIN PURIFIED PORK
     Dosage: UNK
     Route: 065
     Dates: start: 20240717
  22. INSULIN PORK\INSULIN PURIFIED PORK [Concomitant]
     Active Substance: INSULIN PORK\INSULIN PURIFIED PORK
     Dosage: UNK
     Route: 065
     Dates: end: 20240718
  23. CALCIUM [Concomitant]
     Active Substance: CALCIUM
     Dosage: UNK
     Route: 065
     Dates: start: 20240717

REACTIONS (2)
  - Hyperkalaemia [Recovered/Resolved]
  - Drug ineffective [Unknown]
